FAERS Safety Report 20034426 (Version 1)
Quarter: 2021Q4

REPORT INFORMATION
  Report Type: Spontaneous
  Country: US (occurrence: US)
  Receive Date: 20211104
  Receipt Date: 20211104
  Transmission Date: 20220303
  Serious: No
  Sender: FDA-Public Use
  Company Number: US-PERRIGO-21US010079

PATIENT

DRUGS (1)
  1. DOXYLAMINE SUCCINATE [Suspect]
     Active Substance: DOXYLAMINE SUCCINATE
     Indication: Insomnia
     Dosage: UNKNOWN, UNKNOWN
     Route: 048
     Dates: start: 202107

REACTIONS (6)
  - Hypnagogic hallucination [Unknown]
  - Headache [Unknown]
  - Anxiety [Unknown]
  - Depressed mood [Unknown]
  - Feeling abnormal [Unknown]
  - Therapeutic product effect variable [Unknown]

NARRATIVE: CASE EVENT DATE: 20210701
